FAERS Safety Report 7999531-7 (Version None)
Quarter: 2011Q4

REPORT INFORMATION
  Report Type: 
  Country: None (occurrence: None)
  Receive Date: 20111221
  Receipt Date: 20111214
  Transmission Date: 20120403
  Serious: Yes (Hospitalization, Other)
  Sender: FDA-Public Use
  Company Number: US-ABBOTT-11P-163-0874976-00

PATIENT
  Sex: Female
  Weight: 66.738 kg

DRUGS (20)
  1. AMLODIPINE [Concomitant]
     Indication: BLOOD PRESSURE
     Dates: start: 20110421
  2. CENTRUM SILVER [Concomitant]
     Indication: VITAMIN SUPPLEMENTATION
  3. LISINOPRIL [Concomitant]
     Indication: BLOOD PRESSURE
  4. INFLUENZA HIGH-DOSE 65+ YRS [Concomitant]
     Indication: PRODUCT USED FOR UNKNOWN INDICATION
     Dates: start: 20101104, end: 20101104
  5. HUMIRA [Suspect]
     Indication: RHEUMATOID ARTHRITIS
     Dates: start: 20081001, end: 20110701
  6. LACTAID [Concomitant]
     Indication: DYSPEPSIA
  7. LEFLUNOMIDE [Concomitant]
     Indication: RHEUMATOID ARTHRITIS
  8. H1N1 MIV NOARTIS  4+YR [Concomitant]
     Indication: PRODUCT USED FOR UNKNOWN INDICATION
     Dates: start: 20100108, end: 20100108
  9. CARBAMAZEPINE [Concomitant]
     Indication: CONVULSION
     Dates: start: 20110724
  10. OMEPRAZOLE [Concomitant]
     Indication: DYSPEPSIA
  11. FERROUS GLUCONATE [Concomitant]
     Indication: MINERAL SUPPLEMENTATION
  12. CALCIUM CARBONATE W/VITAMIN D NOS [Concomitant]
     Indication: PRODUCT USED FOR UNKNOWN INDICATION
     Dosage: 500-400MG-UNIT, CHEW
     Dates: start: 20080928
  13. FLU VAC [Concomitant]
     Indication: PRODUCT USED FOR UNKNOWN INDICATION
     Dates: start: 20090911, end: 20090911
  14. CALCIUM [Concomitant]
     Indication: MINERAL SUPPLEMENTATION
  15. HYDROCORTISONE [Concomitant]
     Indication: RHEUMATOID ARTHRITIS
  16. FLU VAC [Concomitant]
     Dates: start: 20101202, end: 20101202
  17. FLU VAC [Concomitant]
     Dates: start: 20111026, end: 20111026
  18. METOPROLOL TARTRATE [Concomitant]
     Indication: BLOOD PRESSURE
  19. PSYLLIUM [Concomitant]
     Indication: SUPPLEMENTATION THERAPY
  20. GUIAFENISIN [Concomitant]
     Indication: PRODUCT USED FOR UNKNOWN INDICATION

REACTIONS (24)
  - PULMONARY CAVITATION [None]
  - ASTHENIA [None]
  - NEUROPATHY PERIPHERAL [None]
  - PNEUMONIA ASPIRATION [None]
  - DYSPNOEA [None]
  - CHEST X-RAY ABNORMAL [None]
  - DYSPNOEA EXERTIONAL [None]
  - ARTHROPATHY [None]
  - SJOGREN'S SYNDROME [None]
  - DIARRHOEA [None]
  - MYCOBACTERIUM FORTUITUM INFECTION [None]
  - WALKING AID USER [None]
  - SYNOVITIS [None]
  - PULMONARY FIBROSIS [None]
  - COMPLEX PARTIAL SEIZURES [None]
  - LUNG INFILTRATION [None]
  - AORTIC ANEURYSM [None]
  - WEIGHT DECREASED [None]
  - ARTHRALGIA [None]
  - LOSS OF CONSCIOUSNESS [None]
  - COUGH [None]
  - IMMUNOSUPPRESSION [None]
  - LUNG NEOPLASM [None]
  - LYMPHADENOPATHY [None]
